FAERS Safety Report 20066200 (Version 4)
Quarter: 2022Q1

REPORT INFORMATION
  Report Type: Report from Study
  Country: US (occurrence: US)
  Receive Date: 20211114
  Receipt Date: 20220130
  Transmission Date: 20220424
  Serious: Yes (Other)
  Sender: FDA-Public Use
  Company Number: US-BEH-2021135790

PATIENT
  Age: 53 Year
  Sex: Female

DRUGS (6)
  1. HIZENTRA [Suspect]
     Active Substance: HUMAN IMMUNOGLOBULIN G
     Indication: Primary immunodeficiency syndrome
     Dosage: 10 GRAM, QW
     Route: 058
     Dates: start: 20210511
  2. HIZENTRA [Suspect]
     Active Substance: HUMAN IMMUNOGLOBULIN G
     Indication: Immunodeficiency common variable
     Dosage: UNK
     Route: 058
     Dates: start: 20210906, end: 20210906
  3. HIZENTRA [Suspect]
     Active Substance: HUMAN IMMUNOGLOBULIN G
     Dosage: UNK
     Route: 058
     Dates: start: 20211024
  4. HIZENTRA [Suspect]
     Active Substance: HUMAN IMMUNOGLOBULIN G
     Dosage: UNK
     Route: 058
     Dates: start: 20211031
  5. HIZENTRA [Suspect]
     Active Substance: HUMAN IMMUNOGLOBULIN G
     Dosage: 10 GRAM, QW
     Route: 058
     Dates: start: 20220117
  6. ATOVAQUONE [Concomitant]
     Active Substance: ATOVAQUONE
     Indication: Prophylaxis
     Dosage: UNK, BID
     Route: 065

REACTIONS (31)
  - T-lymphocyte count decreased [Not Recovered/Not Resolved]
  - B-lymphocyte count decreased [Not Recovered/Not Resolved]
  - Injection site pain [Recovering/Resolving]
  - Abdominal distension [Recovering/Resolving]
  - Skin reaction [Unknown]
  - Urticaria [Unknown]
  - Skin warm [Recovered/Resolved]
  - Swelling [Recovered/Resolved]
  - Infusion site erythema [Recovered/Resolved]
  - Infusion site urticaria [Recovered/Resolved]
  - Infusion site swelling [Unknown]
  - Infusion site warmth [Unknown]
  - Pruritus [Recovered/Resolved]
  - Skin reaction [Unknown]
  - Recalled product administered [Unknown]
  - Skin warm [Unknown]
  - Recalled product administered [Unknown]
  - Swelling [Unknown]
  - Recalled product administered [Recovered/Resolved]
  - Pruritus [Recovered/Resolved]
  - Recalled product administered [Recovered/Resolved]
  - Urticaria [Recovered/Resolved]
  - Recalled product administered [Unknown]
  - Infusion site swelling [Unknown]
  - Recalled product administered [Unknown]
  - Infusion site warmth [Unknown]
  - Recalled product administered [Unknown]
  - Infusion site urticaria [Unknown]
  - Infusion site pruritus [Unknown]
  - Infusion site swelling [Unknown]
  - Infusion site erythema [Unknown]

NARRATIVE: CASE EVENT DATE: 20210824
